FAERS Safety Report 4524784-7 (Version None)
Quarter: 2004Q4

REPORT INFORMATION
  Report Type: 
  Country: None (occurrence: None)
  Receive Date: 20041208
  Receipt Date: 20041122
  Transmission Date: 20050328
  Serious: Yes (Other)
  Sender: FDA-Public Use
  Company Number: 2004-DE-06101BY

PATIENT
  Age: 62 Year
  Sex: Male

DRUGS (4)
  1. MICARDIS HCT [Suspect]
     Indication: BLOOD PRESSURE
     Dosage: 80 MG (NR) PO
     Route: 048
     Dates: start: 20041005, end: 20041113
  2. KEFEXIN (CEFALEXIN MONOHYDRATE) (NR) [Concomitant]
  3. SOMAL (NR) [Concomitant]
  4. ATACAND (CANDESARTAN CILEXETIL) (NR) [Concomitant]

REACTIONS (5)
  - CONDITION AGGRAVATED [None]
  - JOINT STIFFNESS [None]
  - MUSCULOSKELETAL STIFFNESS [None]
  - PHARYNGOLARYNGEAL PAIN [None]
  - PSORIASIS [None]
